FAERS Safety Report 11720645 (Version 1)
Quarter: 2015Q4

REPORT INFORMATION
  Report Type: Spontaneous
  Country: US (occurrence: US)
  Receive Date: 20151110
  Receipt Date: 20151110
  Transmission Date: 20160304
  Serious: No
  Sender: FDA-Public Use
  Company Number: US-PERRIGO-14US010819

PATIENT
  Age: 50 Year
  Sex: Female
  Weight: 78.46 kg

DRUGS (1)
  1. NICOTINE POLACRILEX [Suspect]
     Active Substance: NICOTINE
     Indication: SMOKING CESSATION THERAPY
     Dosage: 1/2 PIECE, 4 TO 5 TIMES DAILY
     Route: 002
     Dates: start: 2011

REACTIONS (4)
  - Incorrect dose administered [Unknown]
  - Oral mucosal discolouration [Unknown]
  - Wrong technique in product usage process [Unknown]
  - Lip discolouration [Unknown]

NARRATIVE: CASE EVENT DATE: 2011
